FAERS Safety Report 5177353-2 (Version None)
Quarter: 2006Q4

REPORT INFORMATION
  Report Type: 
  Country: None (occurrence: None)
  Receive Date: 20061207
  Receipt Date: 20061124
  Transmission Date: 20070319
  Serious: Yes (Hospitalization)
  Sender: FDA-Public Use
  Company Number: 2006145181

PATIENT
  Age: 85 Year
  Sex: Female
  Weight: 68 kg

DRUGS (4)
  1. LYRICA [Suspect]
     Indication: HERPES OPHTHALMIC
     Dosage: 150 MG (75 MG, 2 IN 1 D), ORAL
     Route: 048
     Dates: start: 20060818
  2. LORMETAZEPAM (LORMETAZEPAM) [Concomitant]
  3. PAROXETINE HCL [Concomitant]
  4. LAMOTRIGINE [Concomitant]

REACTIONS (1)
  - SLEEP DISORDER [None]
